FAERS Safety Report 4548304-6 (Version None)
Quarter: 2005Q1

REPORT INFORMATION
  Report Type: 
  Country: None (occurrence: None)
  Receive Date: 20050110
  Receipt Date: 20021015
  Transmission Date: 20050727
  Serious: Yes (Hospitalization, Disabling)
  Sender: FDA-Public Use
  Company Number: US-MERCK-0210USA01631

PATIENT
  Age: 39 Year
  Sex: Female
  Weight: 73 kg

DRUGS (15)
  1. VIOXX [Suspect]
     Indication: ARTHRALGIA
     Route: 048
     Dates: start: 19990817, end: 20000101
  2. VIOXX [Suspect]
     Route: 048
     Dates: start: 20000101, end: 20020601
  3. VIOXX [Suspect]
     Route: 048
     Dates: start: 20020101, end: 20020703
  4. VIOXX [Suspect]
     Indication: DERMATOMYOSITIS
     Route: 048
     Dates: start: 19990817, end: 20000101
  5. VIOXX [Suspect]
     Route: 048
     Dates: start: 20000101, end: 20020601
  6. VIOXX [Suspect]
     Route: 048
     Dates: start: 20020101, end: 20020703
  7. SANDIMMUNE [Concomitant]
     Indication: DERMATOMYOSITIS
     Route: 065
     Dates: start: 19970101
  8. SANDIMMUNE [Concomitant]
     Route: 065
     Dates: start: 20020101
  9. SANDIMMUNE [Concomitant]
     Route: 065
  10. PRELONE [Concomitant]
     Indication: DERMATOMYOSITIS
     Route: 065
     Dates: start: 19930101
  11. PRELONE [Concomitant]
     Route: 065
     Dates: start: 20020101
  12. YASMIN [Suspect]
     Indication: MENSTRUATION IRREGULAR
     Route: 065
     Dates: start: 20020210, end: 20020223
  13. PREDNISONE [Concomitant]
     Route: 065
  14. HORMONAL CONTRACEPTIVES (UNSPECIFIED) [Concomitant]
     Route: 030
     Dates: start: 20011210
  15. LEXAPRO [Concomitant]
     Route: 065

REACTIONS (80)
  - ADJUSTMENT DISORDER [None]
  - AFFECTIVE DISORDER [None]
  - ANAEMIA [None]
  - ANGINA PECTORIS [None]
  - ARTHRALGIA [None]
  - BACK INJURY [None]
  - BACK PAIN [None]
  - BLINDNESS UNILATERAL [None]
  - BLOOD IRON ABNORMAL [None]
  - CEREBROVASCULAR ACCIDENT [None]
  - CERVICITIS [None]
  - CHEST DISCOMFORT [None]
  - COAGULOPATHY [None]
  - COLONIC POLYP [None]
  - CONCUSSION [None]
  - CONFUSIONAL STATE [None]
  - CONSTIPATION [None]
  - DEEP VEIN THROMBOSIS [None]
  - DEPRESSION [None]
  - DIABETES MELLITUS NON-INSULIN-DEPENDENT [None]
  - DIARRHOEA [None]
  - DIPLOPIA [None]
  - DISTURBANCE IN ATTENTION [None]
  - DYSPEPSIA [None]
  - EAR DISCOMFORT [None]
  - ECZEMA [None]
  - EMOTIONAL DISORDER [None]
  - ENCEPHALOMALACIA [None]
  - EXOSTOSIS [None]
  - FALL [None]
  - FIBROMYALGIA [None]
  - FUNGAL INFECTION [None]
  - GAIT DISTURBANCE [None]
  - GASTRITIS [None]
  - HAEMORRHOIDAL HAEMORRHAGE [None]
  - HEAD INJURY [None]
  - HEADACHE [None]
  - HEART RATE IRREGULAR [None]
  - HOT FLUSH [None]
  - HYDROCEPHALUS [None]
  - HYPERTROPHY [None]
  - HYPOAESTHESIA [None]
  - HYPOCHROMIC ANAEMIA [None]
  - INFARCTION [None]
  - INSOMNIA [None]
  - INTRACRANIAL VENOUS SINUS THROMBOSIS [None]
  - JOINT EFFUSION [None]
  - JOINT SWELLING [None]
  - MENOMETRORRHAGIA [None]
  - MIGRAINE [None]
  - MUSCULAR WEAKNESS [None]
  - MUSCULOSKELETAL STIFFNESS [None]
  - MYALGIA [None]
  - NAUSEA [None]
  - NECK PAIN [None]
  - OEDEMA PERIPHERAL [None]
  - OPTIC NERVE DISORDER [None]
  - OPTIC NERVE INJURY [None]
  - OSTEOARTHRITIS [None]
  - OSTEOPENIA [None]
  - PAPILLOEDEMA [None]
  - PARAESTHESIA [None]
  - PHARYNGOLARYNGEAL PAIN [None]
  - PHOTOPHOBIA [None]
  - RASH [None]
  - RECTAL HAEMORRHAGE [None]
  - SINUS TACHYCARDIA [None]
  - SNEEZING [None]
  - SUBARACHNOID HAEMORRHAGE [None]
  - SUPERIOR SAGITTAL SINUS THROMBOSIS [None]
  - TINNITUS [None]
  - TUNNEL VISION [None]
  - URTICARIA [None]
  - UTERINE ENLARGEMENT [None]
  - UTERINE LEIOMYOMA [None]
  - VAGINAL HAEMORRHAGE [None]
  - VISION BLURRED [None]
  - VISUAL DISTURBANCE [None]
  - VISUAL FIELD DEFECT [None]
  - VOMITING [None]
